FAERS Safety Report 6862516-8 (Version None)
Quarter: 2010Q3

REPORT INFORMATION
  Report Type: 
  Country: None (occurrence: None)
  Receive Date: 20100719
  Receipt Date: 20100716
  Transmission Date: 20110219
  Serious: Yes (Other)
  Sender: FDA-Public Use
  Company Number: SEP-2010-00006

PATIENT
  Age: 70 Year
  Sex: Male

DRUGS (2)
  1. PLENAXIS [Suspect]
     Indication: PROSTATE CANCER
     Dosage: (100 MG) INTRAMUSCULAR
     Route: 030
     Dates: start: 20100323, end: 20100325
  2. ZOMETA [Concomitant]

REACTIONS (5)
  - BLOOD CREATININE INCREASED [None]
  - DERMATITIS ALLERGIC [None]
  - DYSPHAGIA [None]
  - PROSTATIC SPECIFIC ANTIGEN INCREASED [None]
  - URTICARIA [None]
